FAERS Safety Report 21266159 (Version 14)
Quarter: 2025Q1

REPORT INFORMATION
  Report Type: Spontaneous
  Country: US (occurrence: US)
  Receive Date: 20220829
  Receipt Date: 20250319
  Transmission Date: 20250409
  Serious: No
  Sender: PFIZER
  Company Number: US-PFIZER INC-PV202200046243

PATIENT
  Age: 70 Year
  Sex: Female
  Weight: 83.401 kg

DRUGS (2)
  1. XALKORI [Suspect]
     Active Substance: CRIZOTINIB
     Indication: Adenocarcinoma
     Route: 048
  2. XALKORI [Suspect]
     Active Substance: CRIZOTINIB
     Indication: Hepatic cancer
     Dosage: 200 MG, 2X/DAY [TAKE 200 MG BY MOUTH 2 (TWO) TIMES A DAY]
     Route: 048

REACTIONS (9)
  - Pain in extremity [Unknown]
  - Back pain [Unknown]
  - Nipple pain [Unknown]
  - Blood magnesium decreased [Unknown]
  - Blood potassium decreased [Unknown]
  - Peripheral swelling [Unknown]
  - Weight increased [Unknown]
  - Product dose omission in error [Unknown]
  - Off label use [Unknown]
